FAERS Safety Report 5304164-7 (Version None)
Quarter: 2007Q2

REPORT INFORMATION
  Report Type: 
  Country: None (occurrence: None)
  Receive Date: 20070423
  Receipt Date: 20070409
  Transmission Date: 20071010
  Serious: Yes (Other)
  Sender: FDA-Public Use
  Company Number: PHEH2007US02242

PATIENT
  Age: 80 Year
  Sex: Male

DRUGS (1)
  1. STALEVO 100 [Suspect]
     Indication: PARKINSON'S DISEASE
     Dosage: 150 MG, QD
     Route: 048
     Dates: start: 20050101, end: 20070201

REACTIONS (7)
  - BLADDER CANCER [None]
  - CALCINOSIS [None]
  - GAIT DISTURBANCE [None]
  - GROIN INFECTION [None]
  - GROIN PAIN [None]
  - LOCAL SWELLING [None]
  - SURGERY [None]
